FAERS Safety Report 7027699-8 (Version None)
Quarter: 2010Q4

REPORT INFORMATION
  Report Type: 
  Country: None (occurrence: None)
  Receive Date: 20101004
  Receipt Date: 20100928
  Transmission Date: 20110411
  Serious: Yes (Other)
  Sender: FDA-Public Use
  Company Number: BE-AMGEN-KDL432590

PATIENT
  Age: 75 Year

DRUGS (3)
  1. VECTIBIX [Suspect]
     Indication: COLORECTAL CANCER
     Dates: start: 20091112, end: 20100624
  2. VECTIBIX [Suspect]
     Dates: start: 20100729
  3. MAGNESIUM [Suspect]

REACTIONS (3)
  - GENERALISED ERYTHEMA [None]
  - SKIN HAEMORRHAGE [None]
  - SKIN TOXICITY [None]
